FAERS Safety Report 4872934-5 (Version None)
Quarter: 2006Q1

REPORT INFORMATION
  Report Type: 
  Country: None (occurrence: None)
  Receive Date: 20060105
  Receipt Date: 20050316
  Transmission Date: 20060701
  Serious: Yes (Other)
  Sender: FDA-Public Use
  Company Number: US-BRISTOL-MYERS SQUIBB COMPANY-12904413

PATIENT
  Age: 52 Year
  Sex: Male
  Weight: 86 kg

DRUGS (2)
  1. SERZONE [Suspect]
     Indication: MAJOR DEPRESSION
  2. PROZAC [Concomitant]
     Dates: start: 19920101

REACTIONS (1)
  - HEPATIC CIRRHOSIS [None]
